FAERS Safety Report 17570517 (Version 2)
Quarter: 2020Q1

REPORT INFORMATION
  Report Type: Report from Study
  Country: CA (occurrence: CA)
  Receive Date: 20200323
  Receipt Date: 20200330
  Transmission Date: 20200409
  Serious: Yes (Other)
  Sender: FDA-Public Use
  Company Number: CA-GLAXOSMITHKLINE-CA2020AMR046771

PATIENT
  Sex: Female

DRUGS (1)
  1. MEPOLIZUMAB [Suspect]
     Active Substance: MEPOLIZUMAB
     Indication: ASTHMA
     Dosage: 100 MG, Z,MONTHLY
     Dates: start: 20171023

REACTIONS (4)
  - Rash erythematous [Unknown]
  - Adverse drug reaction [Unknown]
  - Pruritus [Unknown]
  - Staphylococcal infection [Not Recovered/Not Resolved]
